FAERS Safety Report 4889306-X (Version None)
Quarter: 2006Q1

REPORT INFORMATION
  Report Type: 
  Country: None (occurrence: None)
  Receive Date: 20060120
  Receipt Date: 20060112
  Transmission Date: 20060701
  Serious: Yes (Disabling)
  Sender: FDA-Public Use
  Company Number: 2006010019

PATIENT
  Age: 38 Year
  Sex: Female

DRUGS (1)
  1. ASTELIN [Suspect]
     Indication: NASAL CONGESTION
     Dosage: 2 SPRAYS BID, IN
     Route: 055
     Dates: start: 20020101, end: 20040101

REACTIONS (1)
  - ANOSMIA [None]
